FAERS Safety Report 12836451 (Version 1)
Quarter: 2016Q4

REPORT INFORMATION
  Report Type: Spontaneous
  Country: BR (occurrence: BR)
  Receive Date: 20161011
  Receipt Date: 20161011
  Transmission Date: 20170207
  Serious: Yes (Other)
  Sender: FDA-Public Use
  Company Number: BR-NOVOPROD-513054

PATIENT
  Sex: Female

DRUGS (3)
  1. NOVOLIN N [Suspect]
     Active Substance: INSULIN HUMAN
     Dosage: 30 IU (20IU IN THE MORNING AND 10 IU AT NIGHT)(THE PATIENT WAS IN USE OF THE NPH TO 6 YEARS)
     Route: 065
  2. NOVOLIN N [Suspect]
     Active Substance: INSULIN HUMAN
     Indication: DIABETES MELLITUS
     Dosage: 40 IU
     Route: 058
  3. HUMULIN R [Suspect]
     Active Substance: INSULIN HUMAN
     Indication: DIABETES MELLITUS
     Dosage: UNK (USE REGULAR ALSO TO TWO YEARS)
     Route: 065

REACTIONS (5)
  - Blood glucose increased [Not Recovered/Not Resolved]
  - Muscular weakness [Not Recovered/Not Resolved]
  - Diabetic neuropathy [Not Recovered/Not Resolved]
  - Carpal tunnel syndrome [Not Recovered/Not Resolved]
  - Drug ineffective [Unknown]
